FAERS Safety Report 9029818 (Version 1)
Quarter: 2013Q1

REPORT INFORMATION
  Report Type: Spontaneous
  Country: US (occurrence: US)
  Receive Date: 20130124
  Receipt Date: 20130124
  Transmission Date: 20140127
  Serious: No
  Sender: FDA-Public Use
  Company Number: US-TEVA-380468USA

PATIENT
  Sex: Female
  Weight: 64.92 kg

DRUGS (5)
  1. COPAXONE [Suspect]
     Indication: MULTIPLE SCLEROSIS
     Dosage: QD
     Route: 058
     Dates: start: 200810
  2. DIOVAN [Concomitant]
     Route: 048
  3. AMANTADINE [Concomitant]
     Route: 048
  4. LEXAPRO [Concomitant]
     Route: 048
  5. RELPAX [Concomitant]
     Route: 048

REACTIONS (1)
  - Lymphadenopathy [Not Recovered/Not Resolved]
